FAERS Safety Report 6368337-7 (Version None)
Quarter: 2009Q3

REPORT INFORMATION
  Report Type: 
  Country: None (occurrence: None)
  Receive Date: 20090922
  Receipt Date: 20090909
  Transmission Date: 20100115
  Serious: Yes (Disabling, Other)
  Sender: FDA-Public Use
  Company Number: JP-PFIZER INC-2009235362

PATIENT
  Age: 65 Year

DRUGS (2)
  1. CHAMPIX [Suspect]
     Indication: NICOTINE DEPENDENCE
     Dosage: 0.5 MG, 2X/DAY
     Route: 048
     Dates: start: 20090429, end: 20090623
  2. CHAMPIX [Suspect]
     Indication: SMOKING CESSATION THERAPY

REACTIONS (5)
  - BLOOD TRIGLYCERIDES INCREASED [None]
  - DECREASED APPETITE [None]
  - LIVER DISORDER [None]
  - MALAISE [None]
  - NAUSEA [None]
